FAERS Safety Report 6646223-2 (Version None)
Quarter: 2010Q1

REPORT INFORMATION
  Report Type: 
  Country: None (occurrence: None)
  Receive Date: 20100309
  Receipt Date: 20091113
  Transmission Date: 20100710
  Serious: Yes (Other)
  Sender: FDA-Public Use
  Company Number: 2009SP036693

PATIENT
  Sex: 0

DRUGS (1)
  1. SAPHRIS [Suspect]
     Indication: SCHIZOPHRENIA

REACTIONS (1)
  - CONVULSION [None]
